FAERS Safety Report 9664425 (Version 1)
Quarter: 2013Q4

REPORT INFORMATION
  Report Type: Spontaneous
  Country: TR (occurrence: TR)
  Receive Date: 20131101
  Receipt Date: 20131101
  Transmission Date: 20140711
  Serious: Yes (Other)
  Sender: FDA-Public Use
  Company Number: TR-PFIZER INC-2013298981

PATIENT
  Age: 14 Year
  Sex: Female

DRUGS (4)
  1. PHENYTOIN SODIUM [Suspect]
     Dosage: UNK
  2. TOPIRAMATE [Suspect]
     Dosage: UNK
  3. ACETAZOLAMIDE [Suspect]
     Dosage: UNK
  4. OXCARBAZEPINE [Suspect]
     Dosage: UNK

REACTIONS (5)
  - Poisoning deliberate [Unknown]
  - Victim of sexual abuse [Unknown]
  - Hypokinesia [Unknown]
  - Fatigue [Unknown]
  - Somnolence [Unknown]
